FAERS Safety Report 8152602 (Version 4)
Quarter: 2012Q4

REPORT INFORMATION
  Report Type: 
  Country: US (occurrence: US)
  Receive Date: 20110922
  Receipt Date: 20121130
  Transmission Date: 20130627
  Serious: Yes (Other)
  Sender: FDA-Public Use
  Company Number: US-ASTRAZENECA-2011SE12753

PATIENT
  Age: 51 Year
  Sex: Female
  Weight: 70.3 kg

DRUGS (8)
  1. SEROQUEL [Suspect]
     Indication: SLEEP DISORDER
     Dosage: AT NIGHT
     Route: 048
     Dates: start: 201010, end: 201010
  2. SEROQUEL [Suspect]
     Indication: SLEEP DISORDER
     Route: 048
  3. SEROQUEL [Suspect]
     Indication: SLEEP DISORDER
     Route: 048
  4. CYMBALTA [Concomitant]
  5. KLONOPIN [Concomitant]
  6. ESTRADIOL [Concomitant]
  7. ABILIFY [Concomitant]
  8. ADDERALL [Concomitant]
     Indication: ATTENTION DEFICIT/HYPERACTIVITY DISORDER

REACTIONS (11)
  - Thyroid cancer [Unknown]
  - Neoplasm malignant [Unknown]
  - Thyroid mass [Unknown]
  - Back disorder [Unknown]
  - Insomnia [Unknown]
  - Feeling jittery [Unknown]
  - Increased appetite [Recovered/Resolved]
  - Weight increased [Recovered/Resolved]
  - Off label use [Unknown]
  - Intentional drug misuse [Unknown]
  - Drug ineffective for unapproved indication [Recovered/Resolved]
